FAERS Safety Report 18640886 (Version 2)
Quarter: 2020Q4

REPORT INFORMATION
  Report Type: Spontaneous
  Country: JP (occurrence: JP)
  Receive Date: 20201221
  Receipt Date: 20201224
  Transmission Date: 20210114
  Serious: Yes (Other)
  Sender: FDA-Public Use
  Company Number: JP-ABBVIE-20K-087-3630717-00

PATIENT
  Age: 78 Year
  Sex: Female
  Weight: 59 kg

DRUGS (7)
  1. ATROPINE. [Concomitant]
     Active Substance: ATROPINE
     Indication: PRODUCT USED FOR UNKNOWN INDICATION
     Dates: start: 20201014, end: 20201014
  2. BRIDION [Concomitant]
     Active Substance: SUGAMMADEX
     Indication: PRODUCT USED FOR UNKNOWN INDICATION
     Dates: start: 20201014, end: 20201014
  3. POPSCAINE [Suspect]
     Active Substance: LEVOBUPIVACAINE HYDROCHLORIDE
     Indication: EPIDURAL ANAESTHESIA
     Dosage: 0.25 PERCENT 10ML/ SINGLE DOSE
     Route: 008
     Dates: start: 20201014, end: 20201014
  4. ULTIVA [Concomitant]
     Active Substance: REMIFENTANIL HYDROCHLORIDE
     Indication: PRODUCT USED FOR UNKNOWN INDICATION
     Dates: start: 20201014, end: 20201014
  5. POPSCAINE [Suspect]
     Active Substance: LEVOBUPIVACAINE HYDROCHLORIDE
     Indication: ANALGESIC THERAPY
     Dosage: 0.25 PERCENT 100 ML/ 3 ML PER HOUR, 200 ML
     Route: 008
     Dates: start: 20201014, end: 20201016
  6. ESLAX [Concomitant]
     Active Substance: ROCURONIUM BROMIDE
     Indication: PRODUCT USED FOR UNKNOWN INDICATION
     Dates: start: 20201014, end: 20201014
  7. DIPRIVAN [Concomitant]
     Active Substance: PROPOFOL
     Indication: PRODUCT USED FOR UNKNOWN INDICATION
     Dates: start: 20201014, end: 20201014

REACTIONS (2)
  - Reduced facial expression [Unknown]
  - Seizure [Unknown]

NARRATIVE: CASE EVENT DATE: 20201014
